FAERS Safety Report 15839552 (Version 1)
Quarter: 2019Q1

REPORT INFORMATION
  Report Type: Spontaneous
  Country: IR (occurrence: IR)
  Receive Date: 20190117
  Receipt Date: 20190117
  Transmission Date: 20190417
  Serious: Yes (Death, Hospitalization, Other)
  Sender: FDA-Public Use
  Company Number: IR-ABBVIE-19S-080-2630237-00

PATIENT
  Sex: Male

DRUGS (1)
  1. SURVANTA [Suspect]
     Active Substance: BERACTANT
     Indication: NEONATAL RESPIRATORY DISTRESS SYNDROME
     Dosage: 4CC/KG APPROXIMATELY12
     Route: 039

REACTIONS (3)
  - Tracheal haemorrhage [Fatal]
  - Bradycardia [Fatal]
  - Apnoea [Fatal]
